FAERS Safety Report 6399275-1 (Version None)
Quarter: 2009Q4

REPORT INFORMATION
  Report Type: 
  Country: None (occurrence: None)
  Receive Date: 20091014
  Receipt Date: 20091005
  Transmission Date: 20100525
  Serious: Yes (Death, Hospitalization)
  Sender: FDA-Public Use
  Company Number: US-BIOGENIDEC-2006BI009788

PATIENT
  Age: 62 Year
  Sex: Female

DRUGS (5)
  1. AVONEX [Suspect]
     Indication: MULTIPLE SCLEROSIS
     Route: 030
     Dates: start: 20051011, end: 20060701
  2. SINGULAIR [Concomitant]
  3. COZAAR [Concomitant]
  4. LEXAPRO [Concomitant]
  5. NORVASC [Concomitant]

REACTIONS (1)
  - MULTIPLE MYELOMA [None]
